FAERS Safety Report 9324887 (Version 4)
Quarter: 2014Q3

REPORT INFORMATION
  Report Type: Spontaneous
  Country: US (occurrence: US)
  Receive Date: 20130603
  Receipt Date: 20140729
  Transmission Date: 20150326
  Serious: Yes (Hospitalization, Other)
  Sender: FDA-Public Use
  Company Number: US-009507513-1305USA018029

PATIENT
  Sex: Female
  Weight: 88.89 kg

DRUGS (1)
  1. NUVARING [Suspect]
     Active Substance: ETHINYL ESTRADIOL\ETONOGESTREL
     Indication: CONTRACEPTION
     Dosage: Q 4 WEEKS
     Route: 067
     Dates: start: 20110309, end: 201108

REACTIONS (28)
  - Lymphadenopathy [Unknown]
  - Atelectasis [Unknown]
  - Wheezing [Unknown]
  - Renal disorder [Unknown]
  - Pulmonary embolism [Unknown]
  - Heart rate irregular [Unknown]
  - Nephrolithiasis [Recovered/Resolved]
  - Tricuspid valve incompetence [Unknown]
  - Ovarian cyst [Unknown]
  - Complement factor C4 increased [Unknown]
  - Soft tissue mass [Unknown]
  - Axillary mass [Unknown]
  - Depression [Unknown]
  - Anxiety [Unknown]
  - Dyspnoea [Unknown]
  - Respiratory disorder [Unknown]
  - Pulmonary arterial hypertension [Unknown]
  - Pleural effusion [Unknown]
  - Culture urine positive [Unknown]
  - Complement factor C3 increased [Unknown]
  - Nephrolithiasis [Unknown]
  - Spinal osteoarthritis [Unknown]
  - Right atrial dilatation [Unknown]
  - Gram stain positive [Unknown]
  - Lung infiltration [Unknown]
  - Respiratory tract inflammation [Not Recovered/Not Resolved]
  - Intervertebral disc disorder [Unknown]
  - Spina bifida [Unknown]

NARRATIVE: CASE EVENT DATE: 201107
